FAERS Safety Report 25184450 (Version 3)
Quarter: 2025Q2

REPORT INFORMATION
  Report Type: Spontaneous
  Country: CA (occurrence: CA)
  Receive Date: 20250410
  Receipt Date: 20250509
  Transmission Date: 20250717
  Serious: No
  Sender: PFIZER
  Company Number: CA-PFIZER INC-202300283461

PATIENT
  Age: 54 Year
  Sex: Male
  Weight: 93 kg

DRUGS (13)
  1. RUXIENCE [Suspect]
     Active Substance: RITUXIMAB-PVVR
     Indication: Granulomatosis with polyangiitis
     Route: 042
     Dates: start: 20230821, end: 20230907
  2. RUXIENCE [Suspect]
     Active Substance: RITUXIMAB-PVVR
     Route: 042
     Dates: start: 20240321, end: 20240403
  3. RUXIENCE [Suspect]
     Active Substance: RITUXIMAB-PVVR
     Route: 042
     Dates: start: 20241010, end: 20241024
  4. RUXIENCE [Suspect]
     Active Substance: RITUXIMAB-PVVR
     Route: 042
     Dates: start: 20241024
  5. ACETAMINOPHEN [Concomitant]
     Active Substance: ACETAMINOPHEN
  6. CALCIUM CARBONATE [Concomitant]
     Active Substance: CALCIUM CARBONATE
     Dosage: 500 MG, DAILY
  7. LOPERAMIDE [Concomitant]
     Active Substance: LOPERAMIDE
  8. PREDNISONE [Concomitant]
     Active Substance: PREDNISONE
     Dosage: 5 MG, DAILY
  9. RANITIDINE [Concomitant]
     Active Substance: RANITIDINE
     Dosage: 150 MG, DAILY
  10. SEPTRA [Concomitant]
     Active Substance: SULFAMETHOXAZOLE\TRIMETHOPRIM
  11. SULFANILAMIDE [Concomitant]
     Active Substance: SULFANILAMIDE
  12. TYLENOL [Concomitant]
     Active Substance: ACETAMINOPHEN
  13. CHOLECALCIFEROL [Concomitant]
     Active Substance: CHOLECALCIFEROL
     Dosage: 1000 IU, DAILY

REACTIONS (6)
  - Fatigue [Unknown]
  - Platelet count increased [Unknown]
  - Hypertension [Unknown]
  - Off label use [Unknown]
  - Off label use [Unknown]
  - Intentional product use issue [Unknown]

NARRATIVE: CASE EVENT DATE: 20230821
